FAERS Safety Report 7296180-3 (Version None)
Quarter: 2011Q1

REPORT INFORMATION
  Report Type: 
  Country: None (occurrence: None)
  Receive Date: 20110216
  Receipt Date: 20110210
  Transmission Date: 20110831
  Serious: Yes (Death, Hospitalization)
  Sender: FDA-Public Use
  Company Number: US-PFIZER INC-2010100002

PATIENT
  Sex: Female
  Weight: 81.633 kg

DRUGS (1)
  1. SUTENT [Suspect]
     Indication: RENAL CELL CARCINOMA
     Dosage: 50 MG, DAILY
     Route: 048
     Dates: start: 20100704

REACTIONS (4)
  - DEHYDRATION [None]
  - MALAISE [None]
  - RENAL CELL CARCINOMA [None]
  - DISEASE PROGRESSION [None]
